FAERS Safety Report 9726457 (Version 2)
Quarter: 2013Q4

REPORT INFORMATION
  Report Type: Report from Study
  Country: FR (occurrence: FR)
  Receive Date: 20131203
  Receipt Date: 20131203
  Transmission Date: 20140711
  Serious: Yes (Death)
  Sender: FDA-Public Use
  Company Number: FR-PFIZER INC-2012291891

PATIENT
  Age: 73 Year
  Sex: Male
  Weight: 84 kg

DRUGS (4)
  1. ATGAM [Suspect]
     Indication: BONE MARROW FAILURE
     Dosage: 40 MG/KG, DAILY
     Route: 042
     Dates: start: 20120229, end: 20120304
  2. NEORAL [Concomitant]
     Indication: BONE MARROW FAILURE
     Dosage: 2.5 MG/KG, DAILY
     Route: 048
  3. POLARAMINE [Concomitant]
     Indication: PREMEDICATION
     Dosage: 5 MG, UNK
     Route: 042
  4. SOLUDECADRON [Concomitant]
     Indication: PREMEDICATION
     Dosage: 1 DF, SINGLE
     Route: 042

REACTIONS (1)
  - Treatment failure [Fatal]
